FAERS Safety Report 25931736 (Version 1)
Quarter: 2025Q4

REPORT INFORMATION
  Report Type: Spontaneous
  Country: JP (occurrence: JP)
  Receive Date: 20251016
  Receipt Date: 20251016
  Transmission Date: 20260117
  Serious: Yes (Disabling)
  Sender: OTSUKA
  Company Number: JP-MMM-Otsuka-N9SJ1A0B

PATIENT
  Sex: Female

DRUGS (2)
  1. REXULTI [Suspect]
     Active Substance: BREXPIPRAZOLE
     Indication: Post-traumatic stress disorder
     Dosage: 1 MG
     Route: 065
  2. REXULTI [Suspect]
     Active Substance: BREXPIPRAZOLE
     Dosage: 2 MG
     Route: 065

REACTIONS (4)
  - Cubital tunnel syndrome [Not Recovered/Not Resolved]
  - Ovulation disorder [Unknown]
  - Tremor [Recovered/Resolved]
  - Product use in unapproved indication [Unknown]
